FAERS Safety Report 4510676-6 (Version None)
Quarter: 2004Q4

REPORT INFORMATION
  Report Type: 
  Country: None (occurrence: None)
  Receive Date: 20041025
  Receipt Date: 20040105
  Transmission Date: 20050328
  Serious: Yes (Other)
  Sender: FDA-Public Use
  Company Number: NSADSS2002035556

PATIENT
  Age: 76 Year
  Sex: Female
  Weight: 71.2147 kg

DRUGS (8)
  1. REMICADE [Suspect]
     Indication: RHEUMATOID ARTHRITIS
     Dosage: 300 MG, 1 IN 8 WEEK, INTRAVENOUS DRIP
     Route: 041
     Dates: start: 20010301
  2. METHOTREXATE [Concomitant]
  3. PLAQUENIL [Concomitant]
  4. FOLIC ACID [Concomitant]
  5. ACTONEL [Concomitant]
  6. CALCIUM (CALCIUM) [Concomitant]
  7. MULTIVITAMIN [Concomitant]
  8. MIACALCIN [Concomitant]

REACTIONS (1)
  - BLOOD PRESSURE INCREASED [None]
